FAERS Safety Report 6099787-4 (Version None)
Quarter: 2009Q1

REPORT INFORMATION
  Report Type: 
  Country: None (occurrence: None)
  Receive Date: 20090303
  Receipt Date: 20090218
  Transmission Date: 20090719
  Serious: Yes (Other)
  Sender: FDA-Public Use
  Company Number: PHHY2009PL05290

PATIENT
  Sex: Male
  Weight: 69 kg

DRUGS (4)
  1. EXELON [Suspect]
     Indication: DEMENTIA ALZHEIMER'S TYPE
     Dosage: 4.6 MG/DAY
     Route: 062
     Dates: start: 20081009, end: 20090212
  2. POLOCARD [Concomitant]
     Dosage: UNK
     Route: 048
     Dates: start: 20040101
  3. VASILIP [Concomitant]
     Dosage: UNK
     Route: 048
     Dates: start: 20040101
  4. LANZUL [Concomitant]
     Dosage: UNK
     Route: 048
     Dates: start: 20080901

REACTIONS (5)
  - BLISTER [None]
  - ERYTHEMA [None]
  - HYPERSENSITIVITY [None]
  - PRURITUS [None]
  - SKIN REACTION [None]
